FAERS Safety Report 8658228 (Version 4)
Quarter: 2012Q4

REPORT INFORMATION
  Report Type: 
  Country: JP (occurrence: JP)
  Receive Date: 20120710
  Receipt Date: 20120904
  Transmission Date: 20130627
  Serious: Yes (Other)
  Sender: FDA-Public Use
  Company Number: JP-GLAXOSMITHKLINE-B0813266A

PATIENT
  Age: 56 Year
  Sex: Female
  Weight: 63 kg

DRUGS (7)
  1. PAXIL [Suspect]
     Indication: DEPRESSION
     Dosage: 10MG Per day
     Route: 048
     Dates: start: 20100511, end: 20120704
  2. PAXIL [Suspect]
     Indication: DEPRESSION
     Dosage: 10MG Twice per day
     Route: 048
     Dates: start: 20120705, end: 20120719
  3. MENOPAUSE II (HERBAL) [Concomitant]
     Indication: MENOPAUSAL SYMPTOMS
     Route: 062
     Dates: start: 20090521, end: 20120701
  4. FOIPAN [Concomitant]
     Route: 048
  5. OMEPRAL [Concomitant]
     Route: 048
  6. COLONEL [Concomitant]
     Route: 048
  7. GASTROM [Concomitant]
     Route: 048

REACTIONS (1)
  - Haemorrhage subcutaneous [Recovered/Resolved]
